FAERS Safety Report 24014690 (Version 1)
Quarter: 2024Q2

REPORT INFORMATION
  Report Type: Spontaneous
  Country: US (occurrence: US)
  Receive Date: 20240626
  Receipt Date: 20240626
  Transmission Date: 20240716
  Serious: No
  Sender: FDA-Public Use
  Company Number: US-TEVA-VS-3210516

PATIENT
  Age: 34 Year
  Sex: Female
  Weight: 81.19 kg

DRUGS (1)
  1. AJOVY [Suspect]
     Active Substance: FREMANEZUMAB-VFRM
     Indication: Product used for unknown indication
     Route: 065
     Dates: start: 202404

REACTIONS (5)
  - Injection site bruising [Unknown]
  - Incorrect dose administered by product [Unknown]
  - Injection site haemorrhage [Unknown]
  - Feeling cold [Unknown]
  - Injection site pain [Recovered/Resolved]

NARRATIVE: CASE EVENT DATE: 20240613
